FAERS Safety Report 4903072-0 (Version None)
Quarter: 2006Q1

REPORT INFORMATION
  Report Type: 
  Country: None (occurrence: None)
  Receive Date: 20060207
  Receipt Date: 20050604
  Transmission Date: 20060701
  Serious: Yes (Other)
  Sender: FDA-Public Use
  Company Number: GB-ROCHE-406743

PATIENT
  Age: 18 Year
  Sex: Female
  Weight: 48.1 kg

DRUGS (2)
  1. ROACCUTANE [Suspect]
     Indication: ACNE
     Route: 048
     Dates: start: 20041113, end: 20050527
  2. DIANETTE [Concomitant]
     Indication: ACNE
     Route: 048
     Dates: start: 20021012, end: 20050527

REACTIONS (3)
  - ABORTION INDUCED [None]
  - DRUG EXPOSURE DURING PREGNANCY [None]
  - PREGNANCY [None]
